FAERS Safety Report 7151289-X (Version None)
Quarter: 2010Q4

REPORT INFORMATION
  Report Type: 
  Country: None (occurrence: None)
  Receive Date: 20101210
  Receipt Date: 20101130
  Transmission Date: 20110411
  Serious: Yes (Hospitalization, Other)
  Sender: FDA-Public Use
  Company Number: BR-ABBOTT-09P-020-0597276-00

PATIENT
  Sex: Female
  Weight: 81 kg

DRUGS (9)
  1. HUMIRA [Suspect]
     Indication: RHEUMATOID ARTHRITIS
     Route: 058
     Dates: start: 20090803, end: 20101101
  2. PREDNISONE [Concomitant]
     Indication: RHEUMATOID ARTHRITIS
     Route: 048
  3. NORFLOXACIN [Concomitant]
     Indication: RHEUMATOID ARTHRITIS
     Route: 048
     Dates: start: 20090601
  4. METHOTREXATE [Concomitant]
     Indication: RHEUMATOID ARTHRITIS
     Route: 048
  5. METHOTREXATE [Concomitant]
     Route: 048
  6. FLUOXETINE [Concomitant]
     Indication: ANXIETY
     Route: 048
  7. FLUOXETINE [Concomitant]
     Indication: NERVOUSNESS
  8. COMBINED FORMULA [Concomitant]
     Indication: FLUID RETENTION
     Route: 048
  9. UNKNOWN [Concomitant]
     Indication: RHEUMATOID ARTHRITIS
     Route: 048

REACTIONS (28)
  - ARTHRALGIA [None]
  - ARTHRITIS [None]
  - BURNING SENSATION [None]
  - CYSTITIS [None]
  - DEPRESSION [None]
  - ERYTHEMA [None]
  - GINGIVITIS [None]
  - HYPERHIDROSIS [None]
  - HYPERSENSITIVITY [None]
  - IMMUNODEFICIENCY [None]
  - INFLUENZA [None]
  - INJECTION SITE PAIN [None]
  - JOINT SWELLING [None]
  - MOBILITY DECREASED [None]
  - NEPHROLITHIASIS [None]
  - NERVOUSNESS [None]
  - OEDEMA PERIPHERAL [None]
  - OVARIAN MASS [None]
  - RASH MACULAR [None]
  - RASH PRURITIC [None]
  - RENAL COLIC [None]
  - RENAL PAIN [None]
  - SKIN DISCOLOURATION [None]
  - SWEAT GLAND DISORDER [None]
  - SWELLING [None]
  - THROAT IRRITATION [None]
  - TOOTH FRACTURE [None]
  - VOMITING [None]
